FAERS Safety Report 7687149-5 (Version None)
Quarter: 2011Q3

REPORT INFORMATION
  Report Type: 
  Country: None (occurrence: None)
  Receive Date: 20110816
  Receipt Date: 20110808
  Transmission Date: 20111222
  Serious: Yes (Hospitalization)
  Sender: FDA-Public Use
  Company Number: PHHY2011AR71355

PATIENT
  Age: 70 Year
  Sex: Male

DRUGS (3)
  1. IPRATROPIUM BROMIDE [Concomitant]
  2. ALBUTEROL [Concomitant]
  3. ONBREZ [Suspect]
     Indication: CHRONIC OBSTRUCTIVE PULMONARY DISEASE
     Dosage: 150 UG, QD
     Dates: start: 20110706

REACTIONS (2)
  - CARDIAC FAILURE [None]
  - ARRHYTHMIA SUPRAVENTRICULAR [None]
